FAERS Safety Report 7430901-1 (Version None)
Quarter: 2011Q2

REPORT INFORMATION
  Report Type: 
  Country: None (occurrence: None)
  Receive Date: 20110421
  Receipt Date: 20110331
  Transmission Date: 20111010
  Serious: No
  Sender: FDA-Public Use
  Company Number: US-B.I. PHARMACEUTICALS,INC./RIDGEFIELD-2011-BP-09814BP

PATIENT
  Sex: Male

DRUGS (8)
  1. FUROSEMIDE [Concomitant]
  2. SIMVASTATIN [Concomitant]
  3. PRADAXA [Suspect]
     Dosage: 150 MG
     Route: 048
     Dates: start: 20110312
  4. LEVOTHYROXINE SODIUM [Concomitant]
  5. OMEPRAZOLE [Concomitant]
     Indication: GASTROOESOPHAGEAL REFLUX DISEASE
  6. TERAZOSIN [Concomitant]
  7. CITALOPRAM HYDROBROMIDE [Concomitant]
  8. LISINOPRIL [Concomitant]

REACTIONS (3)
  - BALANCE DISORDER [None]
  - FALL [None]
  - ASTHENIA [None]
